FAERS Safety Report 7376521-9 (Version None)
Quarter: 2011Q1

REPORT INFORMATION
  Report Type: 
  Country: None (occurrence: None)
  Receive Date: 20110325
  Receipt Date: 20110317
  Transmission Date: 20110831
  Serious: Yes (Hospitalization, Other)
  Sender: FDA-Public Use
  Company Number: US-AMGEN-USASP2011003252

PATIENT
  Age: 56 Year
  Sex: Male

DRUGS (4)
  1. MOTRIN [Concomitant]
  2. ENBREL [Suspect]
     Indication: PSORIASIS
     Dosage: 50 MG, 2 TIMES/WK
     Dates: start: 20080601, end: 20101101
  3. LOVASTATIN [Concomitant]
  4. FISH OIL [Concomitant]

REACTIONS (7)
  - GAIT DISTURBANCE [None]
  - OSTEOMYELITIS [None]
  - STAPHYLOCOCCAL INFECTION [None]
  - JOINT SWELLING [None]
  - PSORIASIS [None]
  - ARTHRALGIA [None]
  - MENISCAL DEGENERATION [None]
